FAERS Safety Report 13635821 (Version 1)
Quarter: 2017Q2

REPORT INFORMATION
  Report Type: Spontaneous
  Country: US (occurrence: US)
  Receive Date: 20170531
  Receipt Date: 20170531
  Transmission Date: 20170830
  Serious: No
  Sender: FDA-Public Use
  Company Number: US-ASTELLAS-1744606

PATIENT
  Age: 88 Year
  Sex: Male
  Weight: 86.71 kg

DRUGS (11)
  1. SIMVASTATIN. [Concomitant]
     Active Substance: SIMVASTATIN
  2. OMEPRAZOLE. [Concomitant]
     Active Substance: OMEPRAZOLE
  3. FINASTERIDE. [Concomitant]
     Active Substance: FINASTERIDE
  4. ASPIRIN. [Concomitant]
     Active Substance: ASPIRIN
  5. GILOTRIF [Concomitant]
     Active Substance: AFATINIB
     Route: 065
  6. PROAIR HFA [Concomitant]
     Active Substance: ALBUTEROL SULFATE
  7. TAMSULOSIN [Concomitant]
     Active Substance: TAMSULOSIN
  8. TYLENOL [Concomitant]
     Active Substance: ACETAMINOPHEN
  9. MEGACE [Concomitant]
     Active Substance: MEGESTROL ACETATE
  10. GILOTRIF [Concomitant]
     Active Substance: AFATINIB
     Route: 065
  11. TARCEVA [Suspect]
     Active Substance: ERLOTINIB HYDROCHLORIDE
     Indication: LUNG NEOPLASM MALIGNANT
     Route: 048
     Dates: start: 20151210, end: 20160311

REACTIONS (3)
  - Nausea [Unknown]
  - Decreased appetite [Unknown]
  - Weight decreased [Unknown]

NARRATIVE: CASE EVENT DATE: 20160101
